FAERS Safety Report 8333748-7 (Version None)
Quarter: 2012Q2

REPORT INFORMATION
  Report Type: 
  Country: None (occurrence: None)
  Receive Date: 20120503
  Receipt Date: 20120503
  Transmission Date: 20120825
  Serious: Yes (Hospitalization)
  Sender: FDA-Public Use
  Company Number: None

PATIENT
  Age: 53 Year
  Sex: Male
  Weight: 51.8 kg

DRUGS (5)
  1. REVLIMID [Suspect]
     Indication: MULTIPLE MYELOMA
     Dosage: |DOSAGETEXT: REVLIMID 25 MG||STRENGTH: 25MG||FREQ: DAYS1-21/1,8,15,22||ROUTE: ORAL|
     Route: 048
     Dates: start: 20120214, end: 20120422
  2. DEXAMETHASONE [Concomitant]
     Route: 048
  3. DALTEPARIN SODIUM [Suspect]
     Indication: THROMBOSIS PROPHYLAXIS
     Dosage: |DOSAGETEXT: DALTEPARIN 10,000 U||FREQ: DAILY DAYS 1-28||ROUTE: SUBCUTANEOUS|
     Route: 058
     Dates: start: 20120131, end: 20120730
  4. TRAMADOL HCL [Concomitant]
     Route: 048
  5. CLEOCIN HYDROCHLORIDE [Concomitant]
     Route: 048

REACTIONS (5)
  - DECREASED APPETITE [None]
  - NAUSEA [None]
  - PNEUMONIA STAPHYLOCOCCAL [None]
  - DEHYDRATION [None]
  - ORTHOSTATIC HYPOTENSION [None]
